FAERS Safety Report 16353011 (Version 3)
Quarter: 2019Q2

REPORT INFORMATION
  Report Type: Spontaneous
  Country: US (occurrence: US)
  Receive Date: 20190524
  Receipt Date: 20190627
  Transmission Date: 20190711
  Serious: Yes (Other)
  Sender: FDA-Public Use
  Company Number: US-PFIZER INC-2019217315

PATIENT
  Age: 75 Year
  Sex: Male

DRUGS (10)
  1. TAMSULOSIN [Concomitant]
     Active Substance: TAMSULOSIN
     Indication: CYSTITIS
     Dosage: 0.4 MG, AS NEEDED(AS NEEDED  WILL  DROP BP)
  2. VITAMIN C [Concomitant]
     Active Substance: ASCORBIC ACID
     Dosage: 1000 MG, DAILY(1 DAILY 12 NOON)
  3. LYRICA [Suspect]
     Active Substance: PREGABALIN
     Indication: NEUROPATHY PERIPHERAL
     Dosage: 100 MG, 4X/DAY(4 DAILY.1-6AM, 1-12NOO11, 1-6PM, 1-12PM )
     Dates: start: 201111
  4. CARBIDOPA AND LEVODOPA [Concomitant]
     Active Substance: CARBIDOPA\LEVODOPA
     Indication: PARKINSON^S DISEASE
     Dosage: 1320 MG, DAILY(CARBODOPA:LEVODOPA:10:100)MG (12 DAILY 3-6AM, 3-12NOON, 3-6PM, 3-12PM)
  5. MIDODRINE [Concomitant]
     Active Substance: MIDODRINE
     Indication: HYPOTENSION
     Dosage: 20 MG, DAILY(4 DAILY2- AT SIX AM 2 AT 12)
  6. PRESERVISION [Concomitant]
     Active Substance: MINERALS\VITAMINS
     Dosage: UNK, DAILY(1 DAILY  6AM)
  7. COCONUT OIL [Concomitant]
     Active Substance: COCONUT OIL
     Dosage: 1000 MG, DAILY(1 DAILY 6AM)
  8. VIAGRA [Suspect]
     Active Substance: SILDENAFIL CITRATE
     Dosage: UNK
  9. CETIRIZINE [Concomitant]
     Active Substance: CETIRIZINE HYDROCHLORIDE
     Indication: ANTIALLERGIC THERAPY
     Dosage: 10 MG, AS NEEDED(AS NEEDED  1 TAB COMPARE  TO ZVRTEC)
  10. FISH OIL [Concomitant]
     Active Substance: FISH OIL
     Dosage: 1000 MG, DAILY(1 DAILY 12 NOON)

REACTIONS (2)
  - Off label use [Unknown]
  - Parkinson^s disease [Not Recovered/Not Resolved]

NARRATIVE: CASE EVENT DATE: 201111
